FAERS Safety Report 5479952-7 (Version None)
Quarter: 2007Q4

REPORT INFORMATION
  Report Type: 
  Country: None (occurrence: None)
  Receive Date: 20071008
  Receipt Date: 20071001
  Transmission Date: 20080405
  Serious: Yes (Hospitalization)
  Sender: FDA-Public Use
  Company Number: US-GENENTECH-248734

PATIENT
  Sex: Male
  Weight: 70.295 kg

DRUGS (4)
  1. XOLAIR [Suspect]
     Indication: ASTHMA
     Dosage: UNK, 2/MONTH
     Dates: start: 20070920
  2. ADVAIR DISKUS 100/50 [Concomitant]
     Indication: DRUG USE FOR UNKNOWN INDICATION
  3. SINGULAIR [Concomitant]
     Dosage: 10 MG, UNK
  4. ALBUTEROL [Concomitant]

REACTIONS (2)
  - NAUSEA [None]
  - WHEEZING [None]
